FAERS Safety Report 5903087-X (Version None)
Quarter: 2008Q3

REPORT INFORMATION
  Report Type: 
  Country: None (occurrence: None)
  Receive Date: 20080930
  Receipt Date: 20080930
  Transmission Date: 20090109
  Serious: Yes (Hospitalization)
  Sender: FDA-Public Use
  Company Number: US-ABBOTT-08P-163-0477226-00

PATIENT
  Sex: Female
  Weight: 74.91 kg

DRUGS (4)
  1. HUMIRA [Suspect]
     Indication: RHEUMATOID ARTHRITIS
     Route: 058
     Dates: start: 20050101, end: 20070301
  2. HUMIRA [Suspect]
     Indication: RHEUMATOID ARTHRITIS
     Route: 058
     Dates: start: 20080701
  3. HUMIRA [Suspect]
  4. UNKNOWN STEROID [Concomitant]
     Indication: DRUG USE FOR UNKNOWN INDICATION

REACTIONS (7)
  - ARTHRITIS [None]
  - CHEST PAIN [None]
  - COLECTOMY [None]
  - DIVERTICULUM [None]
  - FLUSHING [None]
  - MIGRAINE [None]
  - PHOTOSENSITIVITY REACTION [None]
